FAERS Safety Report 5113717-0 (Version None)
Quarter: 2006Q3

REPORT INFORMATION
  Report Type: 
  Country: None (occurrence: None)
  Receive Date: 20060921
  Receipt Date: 20060921
  Transmission Date: 20061208
  Serious: Yes (Life-Threatening, Hospitalization)
  Sender: FDA-Public Use
  Company Number: None

PATIENT
  Age: 54 Year
  Sex: Male

DRUGS (15)
  1. LINEZOLID [Suspect]
     Indication: OSTEOMYELITIS
     Dosage: 600 MG  PO  BID
     Route: 048
     Dates: start: 20060301, end: 20060419
  2. INSULIN ASPART [Concomitant]
  3. VALGANCICLOVIR HCL [Concomitant]
  4. SMZ-TMP [Concomitant]
  5. PREDNISONE TAB [Concomitant]
  6. NYSTATIN [Concomitant]
  7. FOLIC ACID [Concomitant]
  8. MAG OXIDE [Concomitant]
  9. CACO3 [Concomitant]
  10. FESO4 [Concomitant]
  11. ASPIRIN [Concomitant]
  12. CEFAZOLIN [Concomitant]
  13. RANITIDINE [Concomitant]
  14. MYCOPHENOLATE MOFETIL [Concomitant]
  15. VANCO [Concomitant]

REACTIONS (3)
  - NEUTROPENIA [None]
  - WHITE BLOOD CELL COUNT DECREASED [None]
  - WOUND DEBRIDEMENT [None]
